FAERS Safety Report 8889106 (Version 1)
Quarter: 2012Q4

REPORT INFORMATION
  Report Type: 
  Country: IT (occurrence: IT)
  Receive Date: 20121106
  Receipt Date: 20121106
  Transmission Date: 20130627
  Serious: Yes (Hospitalization, Other)
  Sender: FDA-Public Use
  Company Number: IT-PFIZER INC-2012275589

PATIENT
  Age: 82 Year
  Sex: Female

DRUGS (2)
  1. GABAPENTIN [Suspect]
     Indication: DIABETIC NEUROPATHY
     Dosage: 1200 mg, 1x/day
     Route: 048
     Dates: start: 20120601
  2. OXYCONTIN [Suspect]
     Indication: DIABETIC PERIPHERAL NEUROPATHIC PAIN
     Dosage: 40 mg, 1x/day
     Route: 048
     Dates: start: 20120601

REACTIONS (4)
  - Chorea [Recovered/Resolved]
  - Supraventricular extrasystoles [Unknown]
  - Confusional state [Unknown]
  - Pyrexia [Unknown]
